FAERS Safety Report 8144892-1 (Version None)
Quarter: 2012Q1

REPORT INFORMATION
  Report Type: 
  Country: None (occurrence: None)
  Receive Date: 20120217
  Receipt Date: 20120131
  Transmission Date: 20120608
  Serious: Yes (Hospitalization)
  Sender: FDA-Public Use
  Company Number: FR-GLAXOSMITHKLINE-B0781350A

PATIENT
  Sex: Female
  Weight: 14.5 kg

DRUGS (4)
  1. CYCLOPHOSPHAMIDE [Suspect]
     Indication: PRODUCT USED FOR UNKNOWN INDICATION
     Dosage: 630MG PER DAY
     Route: 042
     Dates: start: 20111206, end: 20111220
  2. THIOGUANINE [Suspect]
     Indication: PRODUCT USED FOR UNKNOWN INDICATION
     Dosage: 40MG PER DAY
     Route: 048
     Dates: start: 20111206, end: 20111226
  3. ONDANSETRON [Suspect]
     Indication: PRODUCT USED FOR UNKNOWN INDICATION
     Dosage: 4MG PER DAY
     Route: 042
     Dates: start: 20111206, end: 20111221
  4. CYTARABINE [Suspect]
     Indication: PRODUCT USED FOR UNKNOWN INDICATION
     Dosage: 18.9MG PER DAY
     Route: 042
     Dates: start: 20111206, end: 20111220

REACTIONS (5)
  - VENOOCCLUSIVE LIVER DISEASE [None]
  - PYREXIA [None]
  - HEPATOMEGALY [None]
  - THROMBOCYTOPENIA [None]
  - BONE MARROW FAILURE [None]
